FAERS Safety Report 10253802 (Version 1)
Quarter: 2014Q2

REPORT INFORMATION
  Report Type: Spontaneous
  Country: US (occurrence: US)
  Receive Date: 20140623
  Receipt Date: 20140623
  Transmission Date: 20141212
  Serious: No
  Sender: FDA-Public Use
  Company Number: US-ZOGENIX, INC.-2011ZX000526

PATIENT
  Age: 36 Year
  Sex: Female
  Weight: 90.8 kg

DRUGS (7)
  1. SUMAVEL DOSEPRO [Suspect]
     Indication: MIGRAINE
     Dates: start: 201010
  2. LYRICA [Concomitant]
     Indication: MIGRAINE
  3. CYMBALTA [Concomitant]
     Indication: MIGRAINE
  4. EFFEXOR [Concomitant]
     Indication: DEPRESSION
  5. TRAZODONE [Concomitant]
     Indication: SLEEP DISORDER
  6. SEROQUEL [Concomitant]
     Indication: DEPRESSION
  7. SIMVASTATIN [Concomitant]
     Indication: BLOOD CHOLESTEROL

REACTIONS (4)
  - Cough [Recovered/Resolved]
  - Device malfunction [Recovered/Resolved]
  - Vomiting [Recovered/Resolved]
  - Accidental exposure to product [Recovered/Resolved]
